FAERS Safety Report 23457209 (Version 2)
Quarter: 2024Q1

REPORT INFORMATION
  Report Type: Spontaneous
  Country: CN (occurrence: CN)
  Receive Date: 20240130
  Receipt Date: 20240207
  Transmission Date: 20240410
  Serious: Yes (Hospitalization, Other)
  Sender: FDA-Public Use
  Company Number: CN-ORGANON-O2401CHN002256

PATIENT
  Age: 26 Year
  Sex: Female
  Weight: 52.3 kg

DRUGS (11)
  1. FOLLITROPIN BETA [Suspect]
     Active Substance: FOLLITROPIN BETA
     Indication: Superovulation
     Dosage: SUBCUTANEOUS INJECTION, 150IU, QD
     Route: 058
     Dates: start: 20240103, end: 20240107
  2. FOLLITROPIN BETA [Suspect]
     Active Substance: FOLLITROPIN BETA
  3. MENOTROPINS [Suspect]
     Active Substance: MENOTROPINS
     Indication: Superovulation
     Dosage: INTRAMUSCULAR INJECTION, 75IU, QD
     Route: 030
     Dates: start: 20240108, end: 20240112
  4. MENOTROPINS [Suspect]
     Active Substance: MENOTROPINS
     Dosage: INTRAMUSCULAR INJECTION, 225IU, QD
     Route: 030
     Dates: start: 20240113, end: 20240113
  5. CHORIONIC GONADOTROPHIN [Suspect]
     Active Substance: CHORIOGONADOTROPIN ALFA
     Indication: Superovulation
     Dosage: INTRAMUSCULAR INJECTION, 10000IU, QD
     Route: 030
     Dates: start: 20240113, end: 20240113
  6. GONAL-F [Suspect]
     Active Substance: FOLLITROPIN
     Indication: Superovulation
     Dosage: SUBCUTANEOUS INJECTION, 150IU, QD
     Route: 058
     Dates: start: 20240112, end: 20240112
  7. LUVERIS [Suspect]
     Active Substance: LUTROPIN ALFA
     Indication: Superovulation
     Dosage: SUBCUTANEOUS INJECTION, 75IU, QD
     Route: 058
     Dates: start: 20240112, end: 20240112
  8. SODIUM CHLORIDE [Concomitant]
     Active Substance: SODIUM CHLORIDE
     Indication: Vehicle solution use
     Dosage: INTRAMUSCULAR INJECTION, 2ML, QD
     Route: 030
     Dates: start: 20240108, end: 20240112
  9. SODIUM CHLORIDE [Concomitant]
     Active Substance: SODIUM CHLORIDE
     Dosage: INTRAMUSCULAR INJECTION, 2ML, QD
     Route: 030
     Dates: start: 20240113, end: 20240113
  10. SODIUM CHLORIDE [Concomitant]
     Active Substance: SODIUM CHLORIDE
     Dosage: INTRAMUSCULAR INJECTION, 2ML, QD
     Route: 030
     Dates: start: 20240113, end: 20240113
  11. STERILE WATER [Concomitant]
     Active Substance: WATER
     Indication: Vehicle solution use
     Dosage: SUBCUTANEOUS INJECTION, 1ML, QD
     Route: 058
     Dates: start: 20240112, end: 20240112

REACTIONS (8)
  - Ovarian hyperstimulation syndrome [Recovering/Resolving]
  - Abdominal distension [Recovering/Resolving]
  - Abdominal pain [Recovering/Resolving]
  - Chest discomfort [Recovering/Resolving]
  - Palpitations [Recovering/Resolving]
  - Nausea [Recovering/Resolving]
  - Dizziness [Unknown]
  - Poor quality sleep [Unknown]

NARRATIVE: CASE EVENT DATE: 20240116
